FAERS Safety Report 13720623 (Version 1)
Quarter: 2017Q3

REPORT INFORMATION
  Report Type: Report from Study
  Country: None (occurrence: BR)
  Receive Date: 20170706
  Receipt Date: 20170706
  Transmission Date: 20171127
  Serious: Yes (Hospitalization, Other)
  Sender: FDA-Public Use
  Company Number: BR-ABBVIE-17K-020-2028968-00

PATIENT
  Age: 71 Year
  Sex: Female
  Weight: 75 kg

DRUGS (2)
  1. HUMIRA [Suspect]
     Active Substance: ADALIMUMAB
     Indication: RHEUMATOID ARTHRITIS
     Route: 058
     Dates: start: 20140318, end: 20161207
  2. HUMIRA [Suspect]
     Active Substance: ADALIMUMAB
     Route: 058
     Dates: start: 20170524

REACTIONS (8)
  - Ureteric compression [Unknown]
  - Sinusitis [Unknown]
  - Gastrointestinal disorder [Unknown]
  - Post procedural complication [Unknown]
  - Neuroma [Unknown]
  - Pelvic pain [Unknown]
  - Tonsillitis [Unknown]
  - Urinary tract infection [Unknown]

NARRATIVE: CASE EVENT DATE: 201612
